FAERS Safety Report 5291359-4 (Version None)
Quarter: 2007Q2

REPORT INFORMATION
  Report Type: 
  Country: None (occurrence: None)
  Receive Date: 20070403
  Receipt Date: 20070322
  Transmission Date: 20071010
  Serious: Yes (Other)
  Sender: FDA-Public Use
  Company Number: CFNT Y-83

PATIENT
  Age: 14 Year
  Sex: Female

DRUGS (4)
  1. CEFDITOREN PIVOXIL 300MG [Suspect]
     Indication: PHARYNGOLARYNGEAL PAIN
     Dosage: PO
     Route: 048
     Dates: start: 20070307, end: 20070310
  2. CEFDITOREN PIVOXIL 300MG [Suspect]
     Indication: PYREXIA
     Dosage: PO
     Route: 048
     Dates: start: 20070307, end: 20070310
  3. SOLETON (ZALTOPROFEN) [Concomitant]
  4. EMPYNASE P (PRONASE) [Concomitant]

REACTIONS (2)
  - CONJUNCTIVITIS [None]
  - ECZEMA [None]
